FAERS Safety Report 18360960 (Version 1)
Quarter: 2020Q4

REPORT INFORMATION
  Report Type: Spontaneous
  Country: IT (occurrence: IT)
  Receive Date: 20201008
  Receipt Date: 20201008
  Transmission Date: 20210114
  Serious: Yes (Death, Hospitalization, Other)
  Sender: FDA-Public Use
  Company Number: IT-MYLANLABS-2020M1084461

PATIENT
  Age: 79 Year
  Sex: Male

DRUGS (3)
  1. ERTAPENEM. [Concomitant]
     Active Substance: ERTAPENEM SODIUM
     Indication: MORGANELLA INFECTION
     Dosage: 1 GRAM, QD
     Dates: start: 2020
  2. COLISTIN [Concomitant]
     Active Substance: COLISTIN
     Indication: ACINETOBACTER INFECTION
     Dosage: 2.25 MUI Q12H
     Dates: start: 2020
  3. CASPOFUNGIN [Suspect]
     Active Substance: CASPOFUNGIN
     Indication: CANDIDA INFECTION
     Dosage: 70 MG LOADING DOSE, DAY 1; 50 MG Q24H, SUBSEQUENT DAYS
     Dates: start: 2020

REACTIONS (3)
  - Candida infection [Unknown]
  - Treatment failure [Unknown]
  - Condition aggravated [Unknown]

NARRATIVE: CASE EVENT DATE: 2020
